FAERS Safety Report 8478097-1 (Version None)
Quarter: 2012Q2

REPORT INFORMATION
  Report Type: 
  Country: None (occurrence: None)
  Receive Date: 20120629
  Receipt Date: 20120622
  Transmission Date: 20120825
  Serious: Yes (Hospitalization, Other)
  Sender: FDA-Public Use
  Company Number: US-BAYER-200939571NA

PATIENT
  Sex: Male
  Weight: 96 kg

DRUGS (33)
  1. LISINOPRIL [Concomitant]
  2. HUMULIN 70/30 [Concomitant]
     Dosage: UNK
     Dates: start: 20060322
  3. GLUCOPHAGE [Concomitant]
     Dosage: UNK
     Dates: start: 20060322
  4. MIRALAX [Concomitant]
     Dosage: BID
  5. TPN [Concomitant]
  6. HEPARIN [Concomitant]
     Dosage: 38000 U, CARDIOPULMONARY BYPASS
     Route: 042
     Dates: start: 20060323, end: 20060323
  7. ALBUMIN [Concomitant]
     Dosage: 50 ML, CARDIOPULMONARY BYPASS
     Dates: start: 20060323, end: 20060323
  8. DOPAMINE HCL [Concomitant]
     Dosage: UNK
     Dates: start: 20060323
  9. PHENYLEPHRINE HCL [Concomitant]
     Dosage: UNK
     Dates: start: 20060323
  10. TRASYLOL [Suspect]
     Indication: CORONARY ARTERY BYPASS
     Dosage: 200 ML, PRIME
     Route: 042
     Dates: start: 20060323, end: 20060323
  11. CELEBREX [Concomitant]
  12. NITROGLYCERIN [Concomitant]
     Dosage: UNK
     Dates: start: 20060323
  13. NATRECOR [Concomitant]
  14. NATRECOR [Concomitant]
  15. TRASYLOL [Suspect]
     Dosage: 50CC/HR LOADING DOSE
     Dates: start: 20060323, end: 20060323
  16. LASIX [Concomitant]
  17. SODIUM BICARBONATE [Concomitant]
     Dosage: 50 ML, CARDIOPULMONARY BYPASS
     Route: 042
     Dates: start: 20060323, end: 20060323
  18. PROTAMINE SULFATE [Concomitant]
     Dosage: UNK
     Dates: start: 20060323, end: 20060323
  19. MANNITOL [Concomitant]
     Dosage: 50 ML, CARDIOPULMONARY BYPASS
     Dates: start: 20060323, end: 20060323
  20. CEFAZOLIN [Concomitant]
     Dosage: UNK
     Dates: start: 20060323, end: 20060323
  21. ATROPINE [Concomitant]
  22. HYDROCHLOROTHIAZIDE [Concomitant]
     Dosage: UNK
     Dates: start: 20060322
  23. HEPARIN [Concomitant]
     Dosage: UNK
     Dates: start: 20060323
  24. LIDOCAINE [Concomitant]
     Dosage: 6, CARDIOPULMONARY BYPASS
     Dates: start: 20060323, end: 20060323
  25. VERSED [Concomitant]
     Dosage: UNK
     Dates: start: 20060323, end: 20060323
  26. EPINEPHRINE [Concomitant]
  27. TRASYLOL [Suspect]
     Dosage: 400CC LOADING DOSE
     Dates: start: 20060323, end: 20060323
  28. COREG [Concomitant]
  29. REGLAN [Concomitant]
  30. ATENOLOL [Concomitant]
     Dosage: UNK
     Dates: start: 20060322
  31. PAPAVERINE [Concomitant]
     Dosage: UNK
     Dates: start: 20060323
  32. PANCURONIUM BROMIDE [Concomitant]
     Dosage: UNK
     Dates: start: 20060323, end: 20060323
  33. AMIODARONE HYDROCHLORIDE [Concomitant]

REACTIONS (9)
  - INJURY [None]
  - UNEVALUABLE EVENT [None]
  - RENAL FAILURE [None]
  - MYOCARDIAL INFARCTION [None]
  - LOW CARDIAC OUTPUT SYNDROME [None]
  - ILEUS [None]
  - RENAL FAILURE ACUTE [None]
  - PULMONARY OEDEMA [None]
  - PAIN [None]
